FAERS Safety Report 5842001-2 (Version None)
Quarter: 2008Q3

REPORT INFORMATION
  Report Type: 
  Country: None (occurrence: None)
  Receive Date: 20080812
  Receipt Date: 20050309
  Transmission Date: 20090109
  Serious: No
  Sender: FDA-Public Use
  Company Number: US-MERCK-0409USA00119M

PATIENT
  Age: 38 Year
  Sex: Female

DRUGS (5)
  1. SINGULAIR [Suspect]
     Indication: ASTHMA
     Route: 048
     Dates: end: 20030901
  2. SINGULAIR [Suspect]
     Route: 048
     Dates: start: 20040330
  3. SINGULAIR [Suspect]
     Indication: HYPERSENSITIVITY
     Route: 048
     Dates: end: 20030901
  4. SINGULAIR [Suspect]
     Route: 048
     Dates: start: 20040330
  5. PULMICORT-100 [Concomitant]
     Route: 065

REACTIONS (4)
  - DRUG EXPOSURE DURING PREGNANCY [None]
  - EAR DISCOMFORT [None]
  - EAR DISORDER [None]
  - NO ADVERSE EVENT [None]
